FAERS Safety Report 18265433 (Version 1)
Quarter: 2020Q3

REPORT INFORMATION
  Report Type: Other
  Country: US (occurrence: US)
  Receive Date: 20200914
  Receipt Date: 20200914
  Transmission Date: 20201103
  Serious: No
  Sender: FDA-Public Use
  Company Number: US-LEADIANT BIOSCIENCES INC-2020STPI000195

PATIENT
  Sex: Male

DRUGS (1)
  1. MATULANE [Suspect]
     Active Substance: PROCARBAZINE HYDROCHLORIDE
     Indication: BRAIN NEOPLASM MALIGNANT
     Dosage: ALTERNATE BETWEEN 2 CAPSILES AND 3 CAPSULES DAILY ON DAYS 8?21 OF EVERY 42 DAY CYCLE
     Route: 048
     Dates: start: 20200325

REACTIONS (1)
  - Constipation [Not Recovered/Not Resolved]
